FAERS Safety Report 20034296 (Version 2)
Quarter: 2021Q4

REPORT INFORMATION
  Report Type: Spontaneous
  Country: DE (occurrence: DE)
  Receive Date: 20211104
  Receipt Date: 20211201
  Transmission Date: 20220303
  Serious: Yes (Hospitalization)
  Sender: FDA-Public Use
  Company Number: DE-TEVA-2021-DE-1973123

PATIENT
  Age: 56 Year
  Sex: Male

DRUGS (1)
  1. SIMVASTATIN [Suspect]
     Active Substance: SIMVASTATIN
     Indication: Blood cholesterol increased
     Dosage: 20 MILLIGRAM DAILY;
     Route: 048
     Dates: start: 2011, end: 2021

REACTIONS (3)
  - Arthritis [Not Recovered/Not Resolved]
  - Pain [Recovering/Resolving]
  - Movement disorder [Not Recovered/Not Resolved]

NARRATIVE: CASE EVENT DATE: 20210201
